FAERS Safety Report 25472985 (Version 1)
Quarter: 2025Q2

REPORT INFORMATION
  Report Type: Spontaneous
  Country: US (occurrence: None)
  Receive Date: 20250623
  Receipt Date: 20250623
  Transmission Date: 20250717
  Serious: Yes (Disabling)
  Sender: FDA-CTU
  Company Number: None

PATIENT
  Age: 39 Year
  Sex: Female
  Weight: 65.25 kg

DRUGS (1)
  1. EMGALITY [Suspect]
     Active Substance: GALCANEZUMAB-GNLM
     Indication: Migraine
     Dates: start: 20241115, end: 20250525

REACTIONS (4)
  - Bronchitis [None]
  - Upper respiratory tract infection [None]
  - Hordeolum [None]
  - Immune system disorder [None]

NARRATIVE: CASE EVENT DATE: 20250101
